FAERS Safety Report 24131460 (Version 3)
Quarter: 2024Q4

REPORT INFORMATION
  Report Type: Report from Study
  Country: CA (occurrence: CA)
  Receive Date: 20240724
  Receipt Date: 20241011
  Transmission Date: 20250115
  Serious: Yes (Hospitalization, Other)
  Sender: JOHNSON AND JOHNSON
  Company Number: CA-JNJFOC-20240751901

PATIENT
  Age: 73 Year
  Sex: Male

DRUGS (2)
  1. SIMPONI [Suspect]
     Active Substance: GOLIMUMAB
     Indication: Rheumatoid arthritis
     Route: 058
  2. SIMPONI [Suspect]
     Active Substance: GOLIMUMAB
     Route: 058

REACTIONS (3)
  - Rheumatoid arthritis [Unknown]
  - Parathyroidectomy [Recovered/Resolved]
  - Laryngeal neoplasm [Unknown]

NARRATIVE: CASE EVENT DATE: 20240724
